FAERS Safety Report 23144942 (Version 1)
Quarter: 2023Q4

REPORT INFORMATION
  Report Type: Spontaneous
  Country: US (occurrence: US)
  Receive Date: 20231103
  Receipt Date: 20231103
  Transmission Date: 20240109
  Serious: No
  Sender: FDA-Public Use
  Company Number: US-TAKEDA-2023TUS104581

PATIENT
  Age: 11 Year
  Sex: Male
  Weight: 40 kg

DRUGS (4)
  1. VYVANSE [Suspect]
     Active Substance: LISDEXAMFETAMINE DIMESYLATE
     Indication: Attention deficit hyperactivity disorder
     Dosage: 40 MILLIGRAM, QD
     Route: 065
     Dates: start: 2022
  2. VYVANSE [Suspect]
     Active Substance: LISDEXAMFETAMINE DIMESYLATE
     Indication: Anxiety
  3. SERTRALINE [Concomitant]
     Active Substance: SERTRALINE HYDROCHLORIDE
     Dosage: 25 MILLIGRAM
     Route: 065
  4. GUANFACINE [Concomitant]
     Active Substance: GUANFACINE
     Indication: Sleep disorder
     Dosage: UNK
     Route: 065

REACTIONS (15)
  - Feeling abnormal [Unknown]
  - Disturbance in attention [Unknown]
  - Change in sustained attention [Unknown]
  - Treatment noncompliance [Unknown]
  - Overweight [Unknown]
  - Eating disorder [Unknown]
  - Frustration tolerance decreased [Unknown]
  - Insurance issue [Unknown]
  - Inability to afford medication [Unknown]
  - Product availability issue [Unknown]
  - Anger [Unknown]
  - Weight decreased [Unknown]
  - Decreased appetite [Unknown]
  - Product dose omission issue [Unknown]
  - Product use issue [Unknown]

NARRATIVE: CASE EVENT DATE: 20221001
